FAERS Safety Report 5983111-9 (Version None)
Quarter: 2008Q4

REPORT INFORMATION
  Report Type: 
  Country: None (occurrence: None)
  Receive Date: 20081208
  Receipt Date: 20081124
  Transmission Date: 20090506
  Serious: Yes (Other)
  Sender: FDA-Public Use
  Company Number: IT-TEVA-181699ISR

PATIENT
  Age: 5 Year

DRUGS (3)
  1. MESALAMINE [Suspect]
     Indication: COLITIS ULCERATIVE
     Route: 048
  2. AZATHIOPRINE [Interacting]
     Indication: COLITIS ULCERATIVE
  3. PREDNISONE TAB [Concomitant]

REACTIONS (3)
  - COLITIS ULCERATIVE [None]
  - DIARRHOEA HAEMORRHAGIC [None]
  - DRUG INTERACTION [None]
